FAERS Safety Report 7168242-2 (Version None)
Quarter: 2010Q4

REPORT INFORMATION
  Report Type: 
  Country: None (occurrence: None)
  Receive Date: 20101216
  Receipt Date: 20101203
  Transmission Date: 20110411
  Serious: Yes (Hospitalization)
  Sender: FDA-Public Use
  Company Number: IN-MYLANLABS-2010S1022528

PATIENT
  Age: 62 Year
  Sex: Male

DRUGS (6)
  1. ZOLPIDEM [Suspect]
     Dosage: AT BEDTIME
     Route: 065
  2. ZOLPIDEM [Suspect]
     Dosage: INCREASED GRADUALLY OVER 6 MONTHS.
     Route: 065
  3. ZOLPIDEM [Suspect]
     Dosage: 4 TABLETS
     Route: 065
  4. ZOLPIDEM [Suspect]
     Dosage: 160-180MG (16-18 TABLETS)
     Route: 065
  5. ESCITALOPRAM [Concomitant]
     Route: 065
  6. GRENIL [Concomitant]
     Dosage: AS REQUIRED BASIS.
     Route: 065

REACTIONS (4)
  - DELIRIUM [None]
  - DEPENDENCE [None]
  - INTENTIONAL DRUG MISUSE [None]
  - WITHDRAWAL SYNDROME [None]
